FAERS Safety Report 11252432 (Version 2)
Quarter: 2015Q3

REPORT INFORMATION
  Report Type: Spontaneous
  Country: US (occurrence: US)
  Receive Date: 20150708
  Receipt Date: 20150803
  Transmission Date: 20151125
  Serious: Yes (Other)
  Sender: FDA-Public Use
  Company Number: US-ROXANE LABORATORIES, INC.-2015-RO-01088RO

PATIENT
  Age: 66 Year
  Sex: Female
  Weight: 102.06 kg

DRUGS (3)
  1. ZITHROMAX [Concomitant]
     Active Substance: AZITHROMYCIN DIHYDRATE
     Indication: INFECTION
  2. FLUTICASONE [Suspect]
     Active Substance: FLUTICASONE\FLUTICASONE PROPIONATE
     Indication: NASAL CONGESTION
     Route: 045
     Dates: start: 20150508, end: 20150509
  3. ZITHROMAX [Concomitant]
     Active Substance: AZITHROMYCIN DIHYDRATE
     Indication: INFLUENZA
     Route: 065
     Dates: start: 20150508, end: 20150513

REACTIONS (4)
  - Headache [Recovered/Resolved]
  - Anosmia [Not Recovered/Not Resolved]
  - Hypogeusia [Not Recovered/Not Resolved]
  - Dizziness [Recovered/Resolved]

NARRATIVE: CASE EVENT DATE: 20150510
